FAERS Safety Report 18455146 (Version 2)
Quarter: 2020Q4

REPORT INFORMATION
  Report Type: Spontaneous
  Country: NL (occurrence: NL)
  Receive Date: 20201102
  Receipt Date: 20201217
  Transmission Date: 20210114
  Serious: Yes (Other)
  Sender: FDA-Public Use
  Company Number: NL-009507513-2010NLD010784

PATIENT
  Age: 25 Year
  Sex: Female

DRUGS (2)
  1. LEVOTHYROXINE SODIUM. [Concomitant]
     Active Substance: LEVOTHYROXINE SODIUM
     Indication: HYPOTHYROIDISM
     Dosage: 25 MICROGRAM, SINCE THE AGE OF 20 YEARS.
     Dates: start: 2015
  2. PEMBROLIZUMAB. [Suspect]
     Active Substance: PEMBROLIZUMAB
     Indication: METASTATIC MALIGNANT MELANOMA
     Dosage: 150 MG FLAT DOSE, ONCE EVERY 3 WEEKS
     Dates: start: 201903

REACTIONS (3)
  - Serous retinal detachment [Recovered/Resolved]
  - Papillitis [Recovering/Resolving]
  - Uveitis [Recovered/Resolved with Sequelae]
